FAERS Safety Report 8120280-9 (Version None)
Quarter: 2012Q1

REPORT INFORMATION
  Report Type: 
  Country: None (occurrence: None)
  Receive Date: 20120207
  Receipt Date: 20120201
  Transmission Date: 20120608
  Serious: Yes (Other)
  Sender: FDA-Public Use
  Company Number: CHPA2012BR002474

PATIENT
  Age: 90 Year
  Sex: Female

DRUGS (1)
  1. CIBALENAA [Suspect]
     Dosage: UNK, UNK
     Route: 048

REACTIONS (3)
  - INAPPROPRIATE SCHEDULE OF DRUG ADMINISTRATION [None]
  - DRUG DEPENDENCE [None]
  - OFF LABEL USE [None]
